FAERS Safety Report 4750188-8 (Version None)
Quarter: 2005Q3

REPORT INFORMATION
  Report Type: 
  Country: None (occurrence: None)
  Receive Date: 20050819
  Receipt Date: 20050804
  Transmission Date: 20060218
  Serious: Yes (Disabling)
  Sender: FDA-Public Use
  Company Number: DPC-2005-00072

PATIENT
  Age: 37 Year
  Sex: Female
  Weight: 68.0396 kg

DRUGS (4)
  1. FLOXIN OTIC [Suspect]
     Indication: OTITIS EXTERNA
     Dosage: 8 DROPS (TID), AURICULAR (OTIC)
     Route: 001
     Dates: start: 20020425, end: 20020508
  2. NEOMYCIN + POLYMYXIN B SULFATES + HYDROCORTISONE OTIC SUSPENSION USP ( [Suspect]
     Dosage: 3 DROPS (TID), AURICULAR (OTIC); 6 DROPS (TID), AURICULAR (OTIC); 16 DROPS (TID), AURICULAR (OTIC)
     Route: 001
     Dates: start: 20020508, end: 20020601
  3. NEOMYCIN + POLYMYXIN B SULFATES + HYDROCORTISONE OTIC SUSPENSION USP ( [Suspect]
     Dosage: 3 DROPS (TID), AURICULAR (OTIC); 6 DROPS (TID), AURICULAR (OTIC); 16 DROPS (TID), AURICULAR (OTIC)
     Route: 001
     Dates: start: 20020602, end: 20020730
  4. NEOMYCIN + POLYMYXIN B SULFATES + HYDROCORTISONE OTIC SUSPENSION USP ( [Suspect]
     Dosage: 3 DROPS (TID), AURICULAR (OTIC); 6 DROPS (TID), AURICULAR (OTIC); 16 DROPS (TID), AURICULAR (OTIC)
     Route: 001
     Dates: start: 20020731, end: 20020803

REACTIONS (18)
  - ANAESTHETIC COMPLICATION [None]
  - APPLICATION SITE REACTION [None]
  - BURNING SENSATION [None]
  - CYST [None]
  - DEAFNESS UNILATERAL [None]
  - DRUG INEFFECTIVE [None]
  - EAR PAIN [None]
  - IMPAIRED HEALING [None]
  - INSTILLATION SITE PAIN [None]
  - INSTILLATION SITE PRURITUS [None]
  - MASTOIDITIS [None]
  - NEURALGIA [None]
  - PROCEDURAL PAIN [None]
  - SINUSITIS [None]
  - THERAPY NON-RESPONDER [None]
  - TINNITUS [None]
  - TYMPANIC MEMBRANE PERFORATION [None]
  - VERTIGO [None]
